FAERS Safety Report 5887489-6 (Version None)
Quarter: 2008Q3

REPORT INFORMATION
  Report Type: 
  Country: None (occurrence: None)
  Receive Date: 20080916
  Receipt Date: 20080904
  Transmission Date: 20090109
  Serious: Yes (Life-Threatening)
  Sender: FDA-Public Use
  Company Number: 20080258

PATIENT
  Age: 38 Year
  Sex: Female

DRUGS (1)
  1. VENOFER [Suspect]
     Indication: IRON DEFICIENCY ANAEMIA
     Dosage: 200 MG ONCE INTRAVENOUS
     Route: 042
     Dates: start: 20060620, end: 20060620

REACTIONS (4)
  - HYPERHIDROSIS [None]
  - HYPOTENSION [None]
  - PARAESTHESIA [None]
  - SYNCOPE [None]
